FAERS Safety Report 5492223-8 (Version None)
Quarter: 2007Q4

REPORT INFORMATION
  Report Type: 
  Country: None (occurrence: None)
  Receive Date: 20071022
  Receipt Date: 20071011
  Transmission Date: 20080405
  Serious: Yes (Other)
  Sender: FDA-Public Use
  Company Number: JP-ASTRAZENECA-2007AP06388

PATIENT
  Age: 62 Year
  Sex: Female

DRUGS (15)
  1. OMEPRAL [Suspect]
     Indication: GASTRIC ULCER
     Route: 048
     Dates: start: 20070930, end: 20071004
  2. OMEPRAL [Concomitant]
     Route: 042
     Dates: start: 20070918, end: 20070929
  3. SOLU-MEDROL [Concomitant]
     Indication: INTERSTITIAL LUNG DISEASE
     Route: 048
     Dates: start: 20070915, end: 20070917
  4. SOLU-MEDROL [Concomitant]
     Indication: PNEUMONIA
     Route: 048
     Dates: start: 20070915, end: 20070917
  5. PREDONINE [Concomitant]
     Indication: INTERSTITIAL LUNG DISEASE
     Route: 042
     Dates: start: 20070917
  6. PREDONINE [Concomitant]
     Indication: PNEUMONIA
     Route: 042
     Dates: start: 20070917
  7. CIPROFLOXACIN [Concomitant]
     Indication: INTERSTITIAL LUNG DISEASE
     Route: 042
     Dates: start: 20070915, end: 20071001
  8. CIPROFLOXACIN [Concomitant]
     Indication: PNEUMONIA
     Route: 042
     Dates: start: 20070915, end: 20071001
  9. PRODIF [Concomitant]
     Indication: INTERSTITIAL LUNG DISEASE
     Route: 048
     Dates: start: 20070915, end: 20071001
  10. PRODIF [Concomitant]
     Indication: PNEUMONIA
     Route: 048
     Dates: start: 20070915, end: 20071001
  11. MINOCYCLINE HCL [Concomitant]
     Indication: INTERSTITIAL LUNG DISEASE
     Route: 048
     Dates: start: 20070915, end: 20070920
  12. MINOCYCLINE HCL [Concomitant]
     Indication: PNEUMONIA
     Route: 048
     Dates: start: 20070915, end: 20070920
  13. ELASPOL [Concomitant]
     Indication: INTERSTITIAL LUNG DISEASE
     Route: 042
     Dates: start: 20070918, end: 20070925
  14. NEO-MINOPHAGEN C [Concomitant]
     Indication: LIVER DISORDER
     Route: 042
     Dates: start: 20070920, end: 20071004
  15. BAKTAR [Concomitant]
     Indication: PROPHYLAXIS
     Route: 048
     Dates: start: 20071002, end: 20071004

REACTIONS (1)
  - BLOOD CREATINE PHOSPHOKINASE INCREASED [None]
